FAERS Safety Report 8447691-6 (Version None)
Quarter: 2012Q2

REPORT INFORMATION
  Report Type: 
  Country: None (occurrence: None)
  Receive Date: 20120619
  Receipt Date: 20120612
  Transmission Date: 20120825
  Serious: Yes (Other)
  Sender: FDA-Public Use
  Company Number: JP-PFIZER INC-2012127388

PATIENT
  Age: 85 Year
  Sex: Female

DRUGS (2)
  1. CELEBREX [Concomitant]
  2. LYRICA [Suspect]
     Indication: OSTEOARTHRITIS
     Dosage: 100 MG, DAILY
     Route: 048

REACTIONS (2)
  - RECURRENT CANCER [None]
  - METASTASES TO LYMPH NODES [None]
